FAERS Safety Report 24574452 (Version 3)
Quarter: 2024Q4

REPORT INFORMATION
  Report Type: Spontaneous
  Country: JP (occurrence: JP)
  Receive Date: 20241104
  Receipt Date: 20241202
  Transmission Date: 20250115
  Serious: Yes (Hospitalization, Other)
  Sender: BIOVITRUM
  Company Number: JP-ASTRAZENECA-240115426_070810_P_1

PATIENT
  Age: 11 Month

DRUGS (2)
  1. SYNAGIS [Suspect]
     Active Substance: PALIVIZUMAB
     Indication: Product used for unknown indication
     Dosage: DOSE UNKNOWN
     Route: 030
     Dates: start: 202402, end: 202403
  2. SYNAGIS [Suspect]
     Active Substance: PALIVIZUMAB
     Dosage: DOSE UNKNOWN
     Route: 030
     Dates: start: 202409

REACTIONS (1)
  - Cardiac disorder [Unknown]

NARRATIVE: CASE EVENT DATE: 20240501
